FAERS Safety Report 6154449-X (Version None)
Quarter: 2009Q2

REPORT INFORMATION
  Report Type: 
  Country: None (occurrence: None)
  Receive Date: 20090410
  Receipt Date: 20090410
  Transmission Date: 20091009
  Serious: Yes (Hospitalization)
  Sender: FDA-Public Use
  Company Number: None

PATIENT
  Sex: Male
  Weight: 104 kg

DRUGS (3)
  1. LENALIDOMIDE [Suspect]
     Indication: HODGKIN'S DISEASE
     Dosage: 25MG Q DAY PO
     Route: 048
     Dates: start: 20080716
  2. HYDROCHLOROTHIAZIDE [Concomitant]
  3. IRBESARTAN [Concomitant]

REACTIONS (4)
  - ABDOMINAL PAIN [None]
  - DISEASE PROGRESSION [None]
  - PAIN [None]
  - PLEURAL EFFUSION [None]
